FAERS Safety Report 8611638-X (Version None)
Quarter: 2012Q3

REPORT INFORMATION
  Report Type: 
  Country: None (occurrence: None)
  Receive Date: 20120822
  Receipt Date: 20120820
  Transmission Date: 20120928
  Serious: No
  Sender: FDA-Public Use
  Company Number: US-PFIZER INC-2012203807

PATIENT
  Sex: Male

DRUGS (2)
  1. LYRICA [Suspect]
     Dosage: 75 MG, IN AM
  2. LYRICA [Suspect]
     Dosage: 100 MG, HS

REACTIONS (1)
  - FATIGUE [None]
